FAERS Safety Report 7484502-X (Version None)
Quarter: 2011Q2

REPORT INFORMATION
  Report Type: 
  Country: None (occurrence: None)
  Receive Date: 20110517
  Receipt Date: 20110503
  Transmission Date: 20111010
  Serious: Yes (Other)
  Sender: FDA-Public Use
  Company Number: CA-JNJFOC-20110502872

PATIENT
  Sex: Female
  Weight: 68 kg

DRUGS (3)
  1. REMICADE [Suspect]
     Indication: RHEUMATOID ARTHRITIS
     Dosage: 36 DOSES
     Route: 042
  2. REMICADE [Suspect]
     Dosage: 36 DOSES
     Route: 042
     Dates: start: 20110311
  3. METHOTREXATE [Concomitant]
     Dosage: 4 PILLS ONCE WEEKLY

REACTIONS (2)
  - CATARACT [None]
  - URINARY TRACT INFECTION [None]
